FAERS Safety Report 6646762-4 (Version None)
Quarter: 2010Q1

REPORT INFORMATION
  Report Type: 
  Country: None (occurrence: None)
  Receive Date: 20100323
  Receipt Date: 20100319
  Transmission Date: 20100710
  Serious: Yes (Other)
  Sender: FDA-Public Use
  Company Number: SG-SANOFI-AVENTIS-2010SA015770

PATIENT
  Sex: Male

DRUGS (1)
  1. DAONIL [Suspect]
     Route: 048

REACTIONS (2)
  - FEELING ABNORMAL [None]
  - PALPITATIONS [None]
